FAERS Safety Report 26089708 (Version 1)
Quarter: 2025Q4

REPORT INFORMATION
  Report Type: Report from Study
  Country: US (occurrence: US)
  Receive Date: 20251125
  Receipt Date: 20251125
  Transmission Date: 20260117
  Serious: Yes (Other)
  Sender: JOHNSON AND JOHNSON
  Company Number: US-JNJFOC-20251167774

PATIENT
  Sex: Male

DRUGS (2)
  1. SPRAVATO [Suspect]
     Active Substance: ESKETAMINE
     Indication: Product used for unknown indication
     Route: 045
  2. SPRAVATO [Suspect]
     Active Substance: ESKETAMINE
     Route: 045
     Dates: start: 20251120

REACTIONS (5)
  - Suicidal ideation [Unknown]
  - Psychotic disorder [Unknown]
  - Fall [Unknown]
  - Lip injury [Unknown]
  - Stress fracture [Unknown]

NARRATIVE: CASE EVENT DATE: 20250101
